FAERS Safety Report 7473421-0 (Version None)
Quarter: 2011Q2

REPORT INFORMATION
  Report Type: 
  Country: None (occurrence: None)
  Receive Date: 20110503
  Receipt Date: 20110419
  Transmission Date: 20111010
  Serious: Yes (Hospitalization)
  Sender: FDA-Public Use
  Company Number: UTC-006464

PATIENT
  Age: 67 Year
  Sex: Female

DRUGS (4)
  1. REMODULIN [Suspect]
     Indication: PULMONARY ARTERIAL HYPERTENSION
     Dosage: 76.32 UG/KG (0.053 UG/KG, 1 IN 1 MIN), INTRAVENOUS
     Route: 042
     Dates: start: 20100803
  2. ASPIRIN [Concomitant]
  3. REVATIO [Concomitant]
  4. DIURETICS [Concomitant]

REACTIONS (1)
  - ENDOTRACHEAL INTUBATION [None]
